FAERS Safety Report 10030733 (Version 2)
Quarter: 2014Q1

REPORT INFORMATION
  Report Type: Spontaneous
  Country: US (occurrence: US)
  Receive Date: 20140323
  Receipt Date: 20140323
  Transmission Date: 20141002
  Serious: No
  Sender: FDA-Public Use
  Company Number: US-ALLERGAN-1400447US

PATIENT
  Age: 5 Decade
  Sex: Female

DRUGS (3)
  1. LATISSE 0.03% [Suspect]
     Indication: GROWTH OF EYELASHES
     Dosage: 2 GTT, UNK
     Route: 061
  2. BLOOD PRESSURE MEDICATION NOS [Concomitant]
     Indication: HYPERTENSION
  3. ADVIL [Concomitant]
     Indication: PRODUCT USED FOR UNKNOWN INDICATION
     Dosage: UNK, PRN

REACTIONS (10)
  - Sebaceous gland disorder [Recovered/Resolved]
  - Acne [Recovered/Resolved]
  - Skin tightness [Recovered/Resolved]
  - Skin irritation [Recovered/Resolved]
  - Pain of skin [Recovered/Resolved]
  - Wrong technique in drug usage process [Unknown]
  - Eyelid pain [Recovered/Resolved]
  - Eye swelling [Recovered/Resolved]
  - Erythema of eyelid [Recovered/Resolved]
  - Madarosis [Recovered/Resolved]
